FAERS Safety Report 8777137 (Version 1)
Quarter: 2012Q4

REPORT INFORMATION
  Report Type: 
  Country: DK (occurrence: DE)
  Receive Date: 20120911
  Receipt Date: 20120911
  Transmission Date: 20130627
  Serious: Yes (Hospitalization)
  Sender: FDA-Public Use
  Company Number: DE-FRI-1000038471

PATIENT
  Sex: Female

DRUGS (1)
  1. CITALOPRAM [Suspect]
     Indication: PAIN
     Dosage: 20 mg
     Dates: end: 201207

REACTIONS (3)
  - Tonsillar disorder [Recovered/Resolved]
  - Adverse event [Recovered/Resolved]
  - Off label use [Recovered/Resolved]
